FAERS Safety Report 15474831 (Version 2)
Quarter: 2018Q4

REPORT INFORMATION
  Report Type: Spontaneous
  Country: PL (occurrence: PL)
  Receive Date: 20181008
  Receipt Date: 20181015
  Transmission Date: 20190205
  Serious: Yes (Other)
  Sender: FDA-Public Use
  Company Number: PL-PFIZER INC-2018402980

PATIENT
  Sex: Female

DRUGS (2)
  1. SUNITINIB MALATE. [Suspect]
     Active Substance: SUNITINIB MALATE
     Indication: RENAL CANCER
     Dosage: 50 MG, DAILY FOR 28 DAYS, CYCLES EVERY 6 WEEKS
     Dates: start: 201409, end: 201502
  2. SUNITINIB MALATE. [Suspect]
     Active Substance: SUNITINIB MALATE
     Dosage: 37.5 MG, DAILY
     Dates: start: 201504, end: 2018

REACTIONS (8)
  - Osteonecrosis of jaw [Unknown]
  - Diarrhoea [Unknown]
  - Blood thyroid stimulating hormone increased [Unknown]
  - Hypertension [Unknown]
  - Palmar-plantar erythrodysaesthesia syndrome [Unknown]
  - Mucous membrane disorder [Unknown]
  - Stomatitis [Unknown]
  - Neoplasm progression [Unknown]

NARRATIVE: CASE EVENT DATE: 201412
